FAERS Safety Report 13885411 (Version 1)
Quarter: 2017Q3

REPORT INFORMATION
  Report Type: Spontaneous
  Country: US (occurrence: US)
  Receive Date: 20170821
  Receipt Date: 20170821
  Transmission Date: 20171127
  Serious: Yes (Death, Other)
  Sender: FDA-Public Use
  Company Number: US-ORPHAN EUROPE-2024838

PATIENT
  Age: 11 Year
  Sex: Female

DRUGS (3)
  1. ARGININE [Concomitant]
     Active Substance: ARGININE
  2. AMMONUL [Concomitant]
     Active Substance: SODIUM BENZOATE\SODIUM PHENYLACETATE
  3. CARBAGLU [Suspect]
     Active Substance: CARGLUMIC ACID
     Indication: HYPERAMMONAEMIA

REACTIONS (6)
  - Brain herniation [Unknown]
  - Death [Fatal]
  - Brain oedema [Unknown]
  - Ammonia increased [Unknown]
  - Off label use [Recovered/Resolved]
  - Circulatory collapse [Unknown]
